FAERS Safety Report 4673824-3 (Version None)
Quarter: 2005Q2

REPORT INFORMATION
  Report Type: 
  Country: None (occurrence: None)
  Receive Date: 20050524
  Receipt Date: 20050511
  Transmission Date: 20051028
  Serious: Yes (Hospitalization)
  Sender: FDA-Public Use
  Company Number: FR_050506386

PATIENT
  Age: 74 Year
  Sex: Female

DRUGS (6)
  1. GEMZAR [Suspect]
     Dates: start: 20050120
  2. ISOPTIN [Concomitant]
  3. ACETAMINOPHEN [Concomitant]
  4. EUPRESSYL (URAPIDIL) [Concomitant]
  5. COVERSYL (PERINDOPRIL ERBUMINE) [Concomitant]
  6. FUROSEMIDE [Concomitant]

REACTIONS (3)
  - CARDIAC FAILURE ACUTE [None]
  - PULMONARY OEDEMA [None]
  - RENAL FAILURE [None]
